FAERS Safety Report 5390582-8 (Version None)
Quarter: 2007Q3

REPORT INFORMATION
  Report Type: 
  Country: None (occurrence: None)
  Receive Date: 20070718
  Receipt Date: 20070503
  Transmission Date: 20080115
  Serious: No
  Sender: FDA-Public Use
  Company Number: US-KINGPHARMUSA00001-K200700558

PATIENT

DRUGS (5)
  1. LEVOXYL [Suspect]
     Indication: HYPOTHYROIDISM
     Dosage: 88 MCG, QD, 6 DAYS A WEEK
     Route: 048
     Dates: start: 19990101
  2. 2 UNSPECIFIED MEDICATIONS [Concomitant]
     Indication: BLOOD PRESSURE
  3. PRILOSEC  /00661201/ [Concomitant]
  4. ASPIRIN [Concomitant]
  5. LEXAPRO [Concomitant]

REACTIONS (8)
  - ALOPECIA [None]
  - ANXIETY [None]
  - BLOOD THYROID STIMULATING HORMONE DECREASED [None]
  - DISCOMFORT [None]
  - FATIGUE [None]
  - HEART RATE INCREASED [None]
  - HYPERHIDROSIS [None]
  - MEMORY IMPAIRMENT [None]
